FAERS Safety Report 4382437-2 (Version None)
Quarter: 2004Q2

REPORT INFORMATION
  Report Type: 
  Country: None (occurrence: None)
  Receive Date: 20040622
  Receipt Date: 20040602
  Transmission Date: 20050107
  Serious: Yes (Other)
  Sender: FDA-Public Use
  Company Number: GB-AMGEN-US080508

PATIENT
  Sex: Female

DRUGS (3)
  1. ENBREL [Suspect]
     Indication: JUVENILE ARTHRITIS
     Route: 058
     Dates: start: 20000301, end: 20030901
  2. PREDNISOLONE [Suspect]
  3. METHOTREXATE [Suspect]

REACTIONS (1)
  - PSYCHOTIC DISORDER [None]
